FAERS Safety Report 5008194-4 (Version None)
Quarter: 2006Q2

REPORT INFORMATION
  Report Type: 
  Country: None (occurrence: None)
  Receive Date: 20060522
  Receipt Date: 20060427
  Transmission Date: 20061013
  Serious: Yes (Hospitalization)
  Sender: FDA-Public Use
  Company Number: US-MERCK-0605USA00393

PATIENT
  Age: 65 Year
  Sex: Female
  Weight: 38 kg

DRUGS (7)
  1. ZOCOR [Suspect]
     Indication: HYPERLIPIDAEMIA
     Route: 048
     Dates: start: 20051222, end: 20060111
  2. ZOCOR [Suspect]
     Route: 048
     Dates: start: 20060309, end: 20060418
  3. CYANOCOBALAMIN [Suspect]
     Indication: HYPERLIPIDAEMIA
     Route: 048
     Dates: start: 20050929, end: 20060418
  4. EPADEL [Suspect]
     Indication: HYPERLIPIDAEMIA
     Route: 048
     Dates: start: 20051027, end: 20060418
  5. LIPIDIL [Suspect]
     Indication: HYPERLIPIDAEMIA
     Route: 048
     Dates: start: 20051027, end: 20051221
  6. LIPIDIL [Suspect]
     Route: 048
     Dates: start: 20051222, end: 20060418
  7. CRESTOR [Concomitant]
     Indication: HYPERLIPIDAEMIA
     Route: 048
     Dates: start: 20060112, end: 20060308

REACTIONS (1)
  - HEPATITIS ACUTE [None]
